FAERS Safety Report 6976174-5 (Version None)
Quarter: 2010Q3

REPORT INFORMATION
  Report Type: 
  Country: None (occurrence: None)
  Receive Date: 20100910
  Receipt Date: 20090420
  Transmission Date: 20110219
  Serious: No
  Sender: FDA-Public Use
  Company Number: US-WYE-H09045009

PATIENT
  Sex: Female

DRUGS (3)
  1. PRISTIQ [Suspect]
     Indication: DEPRESSION
     Route: 048
     Dates: start: 20090406
  2. PRISTIQ [Suspect]
     Indication: PAIN
  3. TOPROL-XL [Concomitant]

REACTIONS (2)
  - FATIGUE [None]
  - MUSCULAR WEAKNESS [None]
